FAERS Safety Report 4883828-3 (Version None)
Quarter: 2006Q1

REPORT INFORMATION
  Report Type: 
  Country: None (occurrence: None)
  Receive Date: 20060112
  Receipt Date: 20051229
  Transmission Date: 20060701
  Serious: Yes (Life-Threatening, Hospitalization)
  Sender: FDA-Public Use
  Company Number: 2006MP000008

PATIENT
  Age: 85 Year
  Sex: Male

DRUGS (5)
  1. AGGRASTAT [Suspect]
     Indication: ANGINA UNSTABLE
     Dosage: 0.4 UG/KG/MIN; X1; IV
     Route: 042
     Dates: start: 20051118, end: 20051118
  2. CLOPIDOGREL BISULFATE [Suspect]
     Indication: ANGINA UNSTABLE
     Dosage: 100 MG; QD; PO
     Route: 048
     Dates: start: 20051120
  3. HEPARIN [Suspect]
     Indication: ANGINA UNSTABLE
     Dosage: 10 UNITS; IV
     Route: 042
     Dates: start: 20051117, end: 20051121
  4. AGGRASTAT [Suspect]
     Indication: ANGINA UNSTABLE
     Dosage: 0.1 UG/KG/MIN; X1; IV
     Route: 042
     Dates: start: 20051119, end: 20051121
  5. ASPIRIN [Concomitant]

REACTIONS (2)
  - CARDIO-RESPIRATORY ARREST [None]
  - CEREBRAL HAEMORRHAGE [None]
